FAERS Safety Report 17214505 (Version 1)
Quarter: 2019Q4

REPORT INFORMATION
  Report Type: Spontaneous
  Country: US (occurrence: US)
  Receive Date: 20191206
  Receipt Date: 20191206
  Transmission Date: 20200122
  Serious: No
  Sender: FDA-Public Use
  Company Number: None

PATIENT
  Age: 25 Year

DRUGS (1)
  1. BOTOX [Suspect]
     Active Substance: ONABOTULINUMTOXINA
     Dosage: ?          OTHER STRENGTH:200 UNIT;OTHER DOSE:100 UNITS;?
     Route: 023
     Dates: start: 201912

REACTIONS (1)
  - Off label use [None]

NARRATIVE: CASE EVENT DATE: 20191206
